FAERS Safety Report 7831244-4 (Version None)
Quarter: 2011Q4

REPORT INFORMATION
  Report Type: 
  Country: None (occurrence: None)
  Receive Date: 20111021
  Receipt Date: 20111020
  Transmission Date: 20120403
  Serious: Yes (Death)
  Sender: FDA-Public Use
  Company Number: GB-ROCHE-1005791

PATIENT
  Sex: Male

DRUGS (3)
  1. METHOTREXATE [Concomitant]
  2. MABTHERA [Suspect]
     Indication: RHEUMATOID ARTHRITIS
     Dates: start: 20101028
  3. HYDROXYCHLOROQUINE SULFATE [Concomitant]

REACTIONS (1)
  - DEATH [None]
